FAERS Safety Report 8223747-8 (Version None)
Quarter: 2012Q1

REPORT INFORMATION
  Report Type: 
  Country: None (occurrence: None)
  Receive Date: 20120321
  Receipt Date: 20120313
  Transmission Date: 20120608
  Serious: Yes (Disabling)
  Sender: FDA-Public Use
  Company Number: US-US-EMD SERONO, INC.-7119534

PATIENT
  Sex: Male

DRUGS (1)
  1. EGRIFTA [Suspect]
     Indication: PRODUCT USED FOR UNKNOWN INDICATION
     Dates: start: 20120222

REACTIONS (5)
  - PARALYSIS [None]
  - MUSCULOSKELETAL PAIN [None]
  - ARTHRALGIA [None]
  - ABDOMINAL PAIN [None]
  - DIARRHOEA [None]
